FAERS Safety Report 5161593-2 (Version None)
Quarter: 2006Q4

REPORT INFORMATION
  Report Type: 
  Country: None (occurrence: None)
  Receive Date: 20061130
  Receipt Date: 20060918
  Transmission Date: 20070319
  Serious: No
  Sender: FDA-Public Use
  Company Number: US-GLAXOSMITHKLINE-A0620580B

PATIENT

DRUGS (1)
  1. WELLBUTRIN XL [Suspect]
     Indication: BIPOLAR DISORDER

REACTIONS (3)
  - DRUG EXPOSURE DURING PREGNANCY [None]
  - DRUG EXPOSURE VIA BREAST MILK [None]
  - GENERAL PHYSICAL HEALTH DETERIORATION [None]
